FAERS Safety Report 16409702 (Version 1)
Quarter: 2019Q2

REPORT INFORMATION
  Report Type: Spontaneous
  Country: US (occurrence: US)
  Receive Date: 20190502
  Receipt Date: 20190502
  Transmission Date: 20190711
  Serious: No
  Sender: FDA-Public Use
  Company Number: None

PATIENT
  Age: 85 Year
  Sex: Male
  Weight: 90.72 kg

DRUGS (14)
  1. MAGNESIUM-OX [Concomitant]
  2. ATORVASTATIN [Concomitant]
     Active Substance: ATORVASTATIN
  3. XTANDI [Suspect]
     Active Substance: ENZALUTAMIDE
     Indication: BLOOD TESTOSTERONE INCREASED
     Dosage: ?          QUANTITY:40 MG MILLIGRAM(S);?
     Route: 048
     Dates: start: 20190410, end: 20190414
  4. AMLODIPINE [Concomitant]
     Active Substance: AMLODIPINE BESYLATE
  5. POTASSIUM [Concomitant]
     Active Substance: POTASSIUM
  6. MULTIVITAMIN (NO K) [Concomitant]
  7. CALCIUM D [Concomitant]
     Active Substance: CALCIUM\VITAMIN D
  8. XTANDI [Concomitant]
     Active Substance: ENZALUTAMIDE
  9. SYSTANE EYEDROPS [Concomitant]
     Active Substance: POLYETHYLENE GLYCOL 400\PROPYLENE GLYCOL
  10. COQ10 [Concomitant]
     Active Substance: UBIDECARENONE
  11. OMEPRAZOLE. [Concomitant]
     Active Substance: OMEPRAZOLE
  12. WARFARIN [Concomitant]
     Active Substance: WARFARIN
  13. METOPROLOL. [Concomitant]
     Active Substance: METOPROLOL
  14. LUPRON [Concomitant]
     Active Substance: LEUPROLIDE ACETATE

REACTIONS (4)
  - Flatulence [None]
  - Balance disorder [None]
  - Diarrhoea [None]
  - Nausea [None]

NARRATIVE: CASE EVENT DATE: 20190414
